FAERS Safety Report 4885819-5 (Version None)
Quarter: 2006Q1

REPORT INFORMATION
  Report Type: 
  Country: None (occurrence: None)
  Receive Date: 20060117
  Receipt Date: 20060103
  Transmission Date: 20060701
  Serious: Yes (Death, Other)
  Sender: FDA-Public Use
  Company Number: 2005168464

PATIENT
  Age: 77 Year
  Sex: Female

DRUGS (3)
  1. LIPITOR [Suspect]
     Indication: HYPERCHOLESTEROLAEMIA
     Dosage: 80 MG (80  MG, 1 IN 1 D), ORAL
     Route: 048
     Dates: start: 20050301, end: 20050901
  2. TERTROXIN (LIOTHYRONINE SODIUM) [Concomitant]
  3. ARICEPT [Concomitant]

REACTIONS (2)
  - HEPATITIS ACUTE [None]
  - RHABDOMYOLYSIS [None]
